FAERS Safety Report 13729602 (Version 1)
Quarter: 2017Q3

REPORT INFORMATION
  Report Type: Spontaneous
  Country: US (occurrence: US)
  Receive Date: 20170707
  Receipt Date: 20170707
  Transmission Date: 20171127
  Serious: No
  Sender: FDA-Public Use
  Company Number: US-STRIDES ARCOLAB LIMITED-2017SP006192

PATIENT

DRUGS (7)
  1. IMIQUIMOD. [Suspect]
     Active Substance: IMIQUIMOD
     Dosage: UNK, UNKNOWN
     Route: 065
  2. IMIQUIMOD. [Suspect]
     Active Substance: IMIQUIMOD
     Indication: BASAL CELL CARCINOMA
     Dosage: 5 %, FIVE TIMES A WEEK
     Route: 061
  3. VISMODEGIB. [Concomitant]
     Active Substance: VISMODEGIB
     Indication: BASAL CELL CARCINOMA
     Dosage: 150 MG, QD
     Route: 048
  4. MYCOPHENOLATE MOFETIL. [Concomitant]
     Active Substance: MYCOPHENOLATE MOFETIL
     Indication: IMMUNOSUPPRESSION
     Dosage: 1000 MG, BID
     Route: 065
  5. IMIQUIMOD. [Suspect]
     Active Substance: IMIQUIMOD
     Dosage: 5 %, FIVE TIMES A WEEK
     Route: 061
  6. PREDNISONE. [Concomitant]
     Active Substance: PREDNISONE
     Indication: IMMUNOSUPPRESSION
     Dosage: 5 MG DAILY
     Route: 065
  7. VISMODEGIB. [Concomitant]
     Active Substance: VISMODEGIB
     Dosage: 150 MG, QD
     Route: 048

REACTIONS (2)
  - Off label use [Unknown]
  - Erythema [Recovered/Resolved]
